FAERS Safety Report 6187930-8 (Version None)
Quarter: 2009Q2

REPORT INFORMATION
  Report Type: 
  Country: None (occurrence: None)
  Receive Date: 20090511
  Receipt Date: 20090424
  Transmission Date: 20091009
  Serious: Yes (Other)
  Sender: FDA-Public Use
  Company Number: SPV1-2009-00485

PATIENT
  Age: 54 Year
  Sex: Female

DRUGS (13)
  1. FOSRENOL [Suspect]
     Indication: HYPERPHOSPHATAEMIA
     Dosage: ORAL
     Route: 048
     Dates: start: 20090306, end: 20090313
  2. MICARDIS [Concomitant]
  3. SELOKEN           /00376902/ (METOPROLOL TARTRATE) [Concomitant]
  4. NORVASC [Concomitant]
  5. CALBLOCK (AZELNIDIPINE) [Concomitant]
  6. CAMLEED (ENPROSTIL) [Concomitant]
  7. LANSOPRAZOLE [Concomitant]
  8. FOIPAN (CAMOSTAT MESILATE) [Concomitant]
  9. L-CARNITINE [Concomitant]
  10. RENAGEL [Concomitant]
  11. CINACALCET HYDROCHLORIDE (CINACALCET HYDROCHLORIDE) [Concomitant]
  12. OXAROL (MAXACALCITOL) [Concomitant]
  13. ELCITONIN (ELCATONIN) [Concomitant]

REACTIONS (1)
  - RIB FRACTURE [None]
